FAERS Safety Report 4786080-2 (Version None)
Quarter: 2005Q4

REPORT INFORMATION
  Report Type: 
  Country: None (occurrence: None)
  Receive Date: 20051003
  Receipt Date: 20051003
  Transmission Date: 20060501
  Serious: No
  Sender: FDA-Public Use
  Company Number: None

PATIENT
  Sex: Male
  Weight: 62.6 kg

DRUGS (19)
  1. PACLITAXEL [Suspect]
     Indication: NON-SMALL CELL LUNG CANCER
     Dosage: SEE IMAGE
     Route: 042
     Dates: start: 20050914, end: 20050914
  2. CARBOPLATIN [Suspect]
     Dosage: SEE IMAGE
     Route: 042
     Dates: start: 20050914, end: 20050914
  3. ATIVAN [Concomitant]
  4. BENADRYL [Concomitant]
  5. COMPAZINE [Concomitant]
  6. COUMADIN [Concomitant]
  7. DECADRON [Concomitant]
  8. HYTRIN [Concomitant]
  9. IBUPROFEN [Concomitant]
  10. IMITREX [Concomitant]
  11. LEVAQUIN [Concomitant]
  12. LOVASTIN [Concomitant]
  13. LOVENOX [Concomitant]
  14. M.V.I. [Concomitant]
  15. PEPCID [Concomitant]
  16. RANITIDINE [Concomitant]
  17. TYLENOL (CAPLET) [Concomitant]
  18. VANCOMYCIN [Concomitant]
  19. ZOFRAN [Concomitant]

REACTIONS (1)
  - PULMONARY EMBOLISM [None]
